FAERS Safety Report 9360201 (Version 3)
Quarter: 2013Q3

REPORT INFORMATION
  Report Type: Report from Study
  Country: US (occurrence: US)
  Receive Date: 20130621
  Receipt Date: 20130925
  Transmission Date: 20140515
  Serious: Yes (Hospitalization)
  Sender: FDA-Public Use
  Company Number: US-BIOGENIDEC-2013BI053054

PATIENT
  Age: 51 Year
  Sex: Male
  Weight: 92 kg

DRUGS (5)
  1. TYSABRI [Suspect]
     Indication: MULTIPLE SCLEROSIS
     Route: 042
     Dates: start: 20081230
  2. AMPYRA [Concomitant]
     Indication: MULTIPLE SCLEROSIS
     Route: 048
  3. BACLOFEN [Concomitant]
     Indication: MUSCLE SPASMS
     Route: 048
  4. PROVIGIL [Concomitant]
     Indication: FATIGUE
     Route: 048
  5. LOVENOX [Concomitant]
     Indication: MOBILITY DECREASED
     Route: 058

REACTIONS (1)
  - Cellulitis [Recovered/Resolved]
